FAERS Safety Report 20647706 (Version 1)
Quarter: 2022Q1

REPORT INFORMATION
  Report Type: Spontaneous
  Country: US (occurrence: None)
  Receive Date: 20220328
  Receipt Date: 20220328
  Transmission Date: 20220424
  Serious: Yes (Hospitalization)
  Sender: FDA-Public Use
  Company Number: None

PATIENT
  Age: 59 Year
  Sex: Male

DRUGS (1)
  1. TABRECTA [Suspect]
     Active Substance: CAPMATINIB
     Dosage: FREQUENCY : TWICE A DAY;?
     Route: 048
     Dates: start: 202203

REACTIONS (2)
  - Dyspnoea [None]
  - Neoplasm [None]

NARRATIVE: CASE EVENT DATE: 20220328
